FAERS Safety Report 9258621 (Version 1)
Quarter: 2013Q2

REPORT INFORMATION
  Report Type: Spontaneous
  Country: US (occurrence: None)
  Receive Date: 20130425
  Receipt Date: 20130425
  Transmission Date: 20140414
  Serious: Yes (Hospitalization)
  Sender: FDA-Public Use
  Company Number: None

PATIENT
  Age: 57 Year
  Sex: Male
  Weight: 89 kg

DRUGS (7)
  1. LISINOPRIL [Suspect]
     Indication: HYPERTENSION
     Dosage: MANY YEARS PRIOR TO ADMIT
     Route: 048
  2. CHLORDIAZEPOXIDE [Suspect]
     Dosage: 2 DOSES
     Route: 048
  3. LABETALOL [Concomitant]
  4. AMLODIPINE [Concomitant]
  5. SIMVASTATIN [Concomitant]
  6. CLONIDINE [Concomitant]
  7. CITALOPRAM [Concomitant]

REACTIONS (2)
  - Angioedema [None]
  - Swollen tongue [None]
